FAERS Safety Report 7927406-8 (Version None)
Quarter: 2011Q4

REPORT INFORMATION
  Report Type: 
  Country: None (occurrence: None)
  Receive Date: 20111118
  Receipt Date: 20111117
  Transmission Date: 20120403
  Serious: Yes (Death)
  Sender: FDA-Public Use
  Company Number: PHHY2011NL100852

PATIENT
  Sex: Female

DRUGS (3)
  1. ZOMETA [Suspect]
     Indication: METASTASIS
     Dosage: 4 MG/5ML PER 28 DAYS
     Route: 042
     Dates: start: 20100909
  2. ZOMETA [Suspect]
     Dosage: 4 MG/5ML PER 28 DAYS
     Route: 042
     Dates: start: 20110926
  3. ZOMETA [Suspect]
     Dosage: 4 MG/5ML PER 28 DAYS
     Route: 042
     Dates: start: 20111027

REACTIONS (1)
  - DEATH [None]
